FAERS Safety Report 8605032-5 (Version None)
Quarter: 2012Q3

REPORT INFORMATION
  Report Type: 
  Country: None (occurrence: None)
  Receive Date: 20120808
  Receipt Date: 20120808
  Transmission Date: 20120928
  Serious: Yes (Hospitalization)
  Sender: FDA-Public Use
  Company Number: None

PATIENT
  Age: 56 Year
  Sex: Male
  Weight: 120.8 kg

DRUGS (1)
  1. PREGABALIN [Suspect]
     Indication: RESTLESS LEGS SYNDROME
     Dosage: 75 MG BID PO
     Route: 048
     Dates: start: 20120723, end: 20120801

REACTIONS (3)
  - DYSARTHRIA [None]
  - MYOCLONUS [None]
  - CONVULSION [None]
